FAERS Safety Report 9396113 (Version 1)
Quarter: 2013Q3

REPORT INFORMATION
  Report Type: Spontaneous
  Country: US (occurrence: US)
  Receive Date: 20130711
  Receipt Date: 20130711
  Transmission Date: 20140515
  Serious: Yes (Hospitalization)
  Sender: FDA-Public Use
  Company Number: US-PERRIGO-13US007098

PATIENT
  Age: 30 Year
  Sex: Male

DRUGS (5)
  1. MIDAZOLAM HCL RX 2 MG/ML 7H8 [Suspect]
     Indication: GENERAL ANAESTHESIA
     Dosage: UNK
     Route: 065
  2. PROPOFOL [Suspect]
     Indication: GENERAL ANAESTHESIA
     Dosage: UNK
     Route: 065
  3. ISOFLURANE [Suspect]
     Indication: GENERAL ANAESTHESIA
     Dosage: UNK
     Route: 065
  4. NALOXONE [Suspect]
     Indication: DETOXIFICATION
     Dosage: 80 MG, UKNOWN
     Route: 065
  5. NALTREXONE [Suspect]
     Indication: DETOXIFICATION
     Dosage: 100 MG, UNKNOWN
     Route: 065

REACTIONS (5)
  - Mental status changes [Recovered/Resolved]
  - Respiratory rate increased [Unknown]
  - Pulmonary oedema [Unknown]
  - Pneumomediastinum [Unknown]
  - Oxygen saturation decreased [Unknown]
